FAERS Safety Report 6312471-4 (Version None)
Quarter: 2009Q3

REPORT INFORMATION
  Report Type: 
  Country: None (occurrence: None)
  Receive Date: 20090813
  Receipt Date: 20090805
  Transmission Date: 20100115
  Serious: Yes (Other)
  Sender: FDA-Public Use
  Company Number: CERZ-1000770

PATIENT
  Age: 7 Year
  Sex: Male
  Weight: 19.5 kg

DRUGS (1)
  1. CEREZYME [Suspect]
     Indication: GAUCHER'S DISEASE
     Dosage: 60 U/KG, QW, INTRAVENOUS
     Route: 042
     Dates: start: 20041201

REACTIONS (3)
  - CONVULSION [None]
  - FALL [None]
  - STRABISMUS [None]
